FAERS Safety Report 4567100-7 (Version None)
Quarter: 2005Q1

REPORT INFORMATION
  Report Type: 
  Country: None (occurrence: None)
  Receive Date: 20050201
  Receipt Date: 20050121
  Transmission Date: 20050727
  Serious: Yes (Hospitalization)
  Sender: FDA-Public Use
  Company Number: FR-JNJFOC-20041200112

PATIENT
  Age: 75 Year
  Sex: Female

DRUGS (6)
  1. DURAGESIC [Suspect]
     Route: 062
  2. MOTILYO [Concomitant]
     Route: 065
  3. FORLAX [Concomitant]
     Route: 065
  4. ORELOX [Concomitant]
     Route: 065
  5. DIOVENOR [Concomitant]
     Route: 065
  6. TAREG [Concomitant]
     Route: 065

REACTIONS (5)
  - ABDOMINAL PAIN [None]
  - ANOREXIA [None]
  - HERNIA [None]
  - MUSCULAR WEAKNESS [None]
  - SOMNOLENCE [None]
